FAERS Safety Report 19668517 (Version 2)
Quarter: 2021Q3

REPORT INFORMATION
  Report Type: Spontaneous
  Country: US (occurrence: US)
  Receive Date: 20210806
  Receipt Date: 20210909
  Transmission Date: 20211014
  Serious: No
  Sender: FDA-Public Use
  Company Number: US-PFIZER INC-202100986012

PATIENT
  Age: 54 Year
  Sex: Female
  Weight: 87.98 kg

DRUGS (24)
  1. INVEGA [Suspect]
     Active Substance: PALIPERIDONE
     Dosage: LARGE DOSE
     Dates: start: 202106
  2. BENZTROPINE MESILATE [Concomitant]
     Active Substance: BENZTROPINE MESYLATE
     Dosage: UNK
     Dates: start: 202108
  3. VITAMINE B COMPLEX [Concomitant]
     Active Substance: CYANOCOBALAMIN\PYRIDOXINE HYDROCHLORIDE\RIBOFLAVIN\SODIUM PANTOTHENATE\THIAMINE HYDROCHLORIDE\VITAMIN B COMPLEX
     Dosage: 125 MG
     Dates: start: 2021
  4. MELATONIN [Concomitant]
     Active Substance: MELATONIN
     Dosage: 5 MG NATROL
     Dates: start: 2021
  5. VITAMINE C [Concomitant]
     Active Substance: ASCORBIC ACID
     Dosage: UNK
     Dates: start: 2020
  6. TURMERIC FORCE [Concomitant]
     Dosage: 400 MG
     Dates: start: 2020
  7. FISH OIL [Concomitant]
     Active Substance: FISH OIL
     Dosage: UNK
     Dates: start: 2021
  8. INVEGA [Suspect]
     Active Substance: PALIPERIDONE
     Dosage: UNK
     Dates: start: 2019
  9. VITAMINE B12 [Concomitant]
     Active Substance: CYANOCOBALAMIN
     Dosage: 1000 UG
     Dates: start: 2021
  10. VITAMIN D3 [Concomitant]
     Active Substance: CHOLECALCIFEROL
     Dosage: 2000 IU
     Dates: start: 2017
  11. WILD ALASKAN SALMON OIL [Concomitant]
     Dosage: UNK
     Dates: start: 2020
  12. METFORMIN HCL [Concomitant]
     Active Substance: METFORMIN HYDROCHLORIDE
     Dosage: UNK
     Dates: start: 2018
  13. GLIMEPIRIDE. [Concomitant]
     Active Substance: GLIMEPIRIDE
     Dosage: UNK
     Dates: start: 2020
  14. FENOFIBRATE. [Concomitant]
     Active Substance: FENOFIBRATE
     Dosage: UNK
     Dates: start: 2018
  15. MAGNESIUM L?THREONATE [Concomitant]
     Dosage: UNK
     Dates: start: 2021
  16. MELATONIN [Concomitant]
     Active Substance: MELATONIN
     Dosage: 5MG SUNDOWN
     Dates: start: 2017
  17. REMFRESH [Concomitant]
     Dosage: 2 MG
     Dates: start: 2018
  18. LITHIUM CARBONATE. [Concomitant]
     Active Substance: LITHIUM CARBONATE
     Dosage: UNK
     Dates: start: 2019
  19. PIOGLITAZONE HCL [Concomitant]
     Active Substance: PIOGLITAZONE
     Dosage: UNK
     Dates: start: 2018
  20. SIMVASTATIN. [Concomitant]
     Active Substance: SIMVASTATIN
     Dosage: UNK
     Dates: start: 2018
  21. LITHIUM CARBONATE. [Concomitant]
     Active Substance: LITHIUM CARBONATE
     Dosage: UNK
     Dates: start: 2019
  22. MAGNESIUM LACTATE [Concomitant]
     Active Substance: MAGNESIUM LACTATE
     Dosage: UNK
     Dates: start: 2020
  23. EFFEXOR XR [Suspect]
     Active Substance: VENLAFAXINE HYDROCHLORIDE
     Indication: DEPRESSION
     Dosage: 150 MG, 2X/DAY
     Dates: start: 202001
  24. INVEGA [Suspect]
     Active Substance: PALIPERIDONE
     Dosage: 254 MG

REACTIONS (4)
  - Memory impairment [Unknown]
  - Confusional state [Unknown]
  - Overdose [Recovered/Resolved]
  - Nervousness [Unknown]

NARRATIVE: CASE EVENT DATE: 202001
